FAERS Safety Report 22219813 (Version 1)
Quarter: 2023Q2

REPORT INFORMATION
  Report Type: Spontaneous
  Country: ES (occurrence: ES)
  Receive Date: 20230417
  Receipt Date: 20230417
  Transmission Date: 20230721
  Serious: Yes (Hospitalization)
  Sender: FDA-Public Use
  Company Number: None

PATIENT
  Age: 92 Year
  Sex: Female
  Weight: 48 kg

DRUGS (2)
  1. FUROSEMIDE [Interacting]
     Active Substance: FUROSEMIDE
     Indication: Cardiac failure
     Dosage: UNK
     Route: 048
     Dates: start: 20191031, end: 20230304
  2. HYDROCHLOROTHIAZIDE\LOSARTAN POTASSIUM [Interacting]
     Active Substance: HYDROCHLOROTHIAZIDE\LOSARTAN POTASSIUM
     Indication: Product used for unknown indication
     Dosage: 1 DOSAGE FORM, QD, 100 MG/12.5 MG
     Route: 048
     Dates: start: 20150505, end: 20230304

REACTIONS (2)
  - Hyponatraemia [Recovered/Resolved]
  - Drug interaction [Unknown]

NARRATIVE: CASE EVENT DATE: 20230304
